FAERS Safety Report 17097131 (Version 1)
Quarter: 2019Q4

REPORT INFORMATION
  Report Type: Spontaneous
  Country: US (occurrence: US)
  Receive Date: 20191104
  Receipt Date: 20191104
  Transmission Date: 20200122
  Serious: No
  Sender: FDA-Public Use
  Company Number: None

PATIENT
  Age: 3 Year
  Sex: Male

DRUGS (1)
  1. SILDENAFIL 10MG/ML PW SUS (112ML) [Suspect]
     Active Substance: SILDENAFIL
     Route: 048
     Dates: start: 20190826

REACTIONS (1)
  - Cough [None]

NARRATIVE: CASE EVENT DATE: 20191104
